FAERS Safety Report 20244229 (Version 2)
Quarter: 2022Q2

REPORT INFORMATION
  Report Type: Spontaneous
  Country: US (occurrence: US)
  Receive Date: 20211229
  Receipt Date: 20220421
  Transmission Date: 20220721
  Serious: No
  Sender: FDA-Public Use
  Company Number: US-BEH-2021139574

PATIENT
  Age: 13 Year
  Sex: Male

DRUGS (2)
  1. HUMATE-P [Suspect]
     Active Substance: HUMAN COAGULATION FACTOR VIII/VON WILLEBRAND FACTOR COMPLEX
     Indication: Von Willebrand^s disease
     Dosage: 5589 INTERNATIONAL UNIT, TIW
     Route: 042
     Dates: start: 20211112
  2. HUMATE-P [Suspect]
     Active Substance: HUMAN COAGULATION FACTOR VIII/VON WILLEBRAND FACTOR COMPLEX
     Dosage: 5589 INTERNATIONAL UNIT, TIW
     Route: 042
     Dates: start: 20211110

REACTIONS (2)
  - Epistaxis [Unknown]
  - Epistaxis [Recovered/Resolved]
